FAERS Safety Report 23848596 (Version 1)
Quarter: 2024Q2

REPORT INFORMATION
  Report Type: Spontaneous
  Country: US (occurrence: US)
  Receive Date: 20240513
  Receipt Date: 20240513
  Transmission Date: 20240715
  Serious: Yes (Hospitalization)
  Sender: FDA-Public Use
  Company Number: US-SANOFI-02032272

PATIENT
  Sex: Male

DRUGS (1)
  1. THYROGEN [Suspect]
     Active Substance: THYROTROPIN ALFA
     Dosage: 0.9 MG
     Route: 065

REACTIONS (4)
  - Dehydration [Unknown]
  - Hypotension [Unknown]
  - Decreased appetite [Unknown]
  - Nausea [Unknown]
